FAERS Safety Report 4292601-9 (Version None)
Quarter: 2004Q1

REPORT INFORMATION
  Report Type: 
  Country: None (occurrence: None)
  Receive Date: 20040126
  Receipt Date: 20031016
  Transmission Date: 20041129
  Serious: No
  Sender: FDA-Public Use
  Company Number: USA031050137

PATIENT
  Age: 80 Year
  Sex: Female
  Weight: 54 kg

DRUGS (2)
  1. FORTEO [Suspect]
     Indication: OSTEOPOROSIS
     Dosage: 20 UG/DAY
     Dates: start: 20031002
  2. METOCLOPRAMIDE [Concomitant]

REACTIONS (3)
  - ANOREXIA [None]
  - CONSTIPATION [None]
  - NAUSEA [None]
